FAERS Safety Report 8018520-X (Version None)
Quarter: 2012Q1

REPORT INFORMATION
  Report Type: 
  Country: None (occurrence: None)
  Receive Date: 20120103
  Receipt Date: 20111219
  Transmission Date: 20120608
  Serious: Yes (Death)
  Sender: FDA-Public Use
  Company Number: US-PFIZER INC-2011311794

PATIENT
  Age: 87 Year
  Sex: Female

DRUGS (8)
  1. LEVOTHYROXINE SODIUM [Suspect]
     Dosage: UNK
     Route: 048
  2. NITROGLYCERIN [Suspect]
     Dosage: UNK
     Route: 048
  3. COLCHICINE [Suspect]
     Dosage: UNK
     Route: 048
  4. HYDRALAZINE HCL [Suspect]
     Dosage: UNK
     Route: 048
  5. METOPROLOL [Suspect]
     Dosage: UNK
     Route: 048
  6. ACETAMINOPHEN WITH PROPOXYPHENE HCL TAB [Suspect]
     Dosage: UNK
     Route: 048
  7. ZOLPIDEM [Suspect]
     Dosage: UNK
     Route: 048
  8. ALPRAZOLAM [Suspect]
     Dosage: UNK
     Route: 048

REACTIONS (1)
  - COMPLETED SUICIDE [None]
